FAERS Safety Report 5754963-2 (Version None)
Quarter: 2008Q2

REPORT INFORMATION
  Report Type: 
  Country: None (occurrence: None)
  Receive Date: 20080528
  Receipt Date: 20080528
  Transmission Date: 20081010
  Serious: No
  Sender: FDA-Public Use
  Company Number: None

PATIENT
  Sex: Female
  Weight: 61 kg

DRUGS (4)
  1. TAXOL [Suspect]
     Dosage: 274 MG
  2. DEXAMETHASONE TAB [Concomitant]
  3. K DUR [Concomitant]
  4. MEDROL [Concomitant]

REACTIONS (4)
  - ARTHRALGIA [None]
  - BLOOD POTASSIUM DECREASED [None]
  - MUSCLE SPASMS [None]
  - MYALGIA [None]
